FAERS Safety Report 8457627-X (Version None)
Quarter: 2012Q2

REPORT INFORMATION
  Report Type: 
  Country: None (occurrence: None)
  Receive Date: 20120622
  Receipt Date: 20120614
  Transmission Date: 20120825
  Serious: Yes (Death, Hospitalization)
  Sender: FDA-Public Use
  Company Number: HU-BRISTOL-MYERS SQUIBB COMPANY-15359607

PATIENT
  Age: 52 Year
  Sex: Male
  Weight: 76 kg

DRUGS (8)
  1. VENTOLIN [Concomitant]
  2. TRAMADOL HCL [Concomitant]
  3. ONDANSETRON HCL [Concomitant]
  4. SPIRIVA [Concomitant]
  5. CONCOR [Concomitant]
  6. ALIMTA [Suspect]
     Indication: NON-SMALL CELL LUNG CANCER
     Dosage: INTERRUPTED ON 13OCT10,22-22SEP10,1D
     Route: 065
     Dates: start: 20100922
  7. CISPLATIN [Suspect]
     Indication: NON-SMALL CELL LUNG CANCER
     Dosage: INTERRUPTED ON 13OCT10,22-22SEP10,1D
     Route: 065
     Dates: start: 20100922
  8. FOLSAURE [Concomitant]

REACTIONS (3)
  - PERICARDIAL EFFUSION [None]
  - ANAEMIA [None]
  - NEOPLASM MALIGNANT [None]
